FAERS Safety Report 8035585-X (Version None)
Quarter: 2012Q1

REPORT INFORMATION
  Report Type: 
  Country: None (occurrence: None)
  Receive Date: 20120110
  Receipt Date: 20120110
  Transmission Date: 20120608
  Serious: Yes (Life-Threatening, Hospitalization, Disabling)
  Sender: FDA-Public Use
  Company Number: None

PATIENT
  Sex: Female
  Weight: 52.3 kg

DRUGS (4)
  1. RISPERIDONE [Suspect]
     Indication: AGITATION
     Dosage: 1 MG AT BEDTIME ORAL PILL
     Route: 048
     Dates: start: 20111120, end: 20111129
  2. RISPERIDONE [Suspect]
     Indication: DEMENTIA
     Dosage: 1 MG AT BEDTIME ORAL PILL
     Route: 048
     Dates: start: 20111120, end: 20111129
  3. RISPERIDONE [Suspect]
     Indication: DEMENTIA
     Dosage: 2 MG AT BEDTIME ORAL PILL
     Route: 048
     Dates: start: 20111130, end: 20111209
  4. RISPERIDONE [Suspect]
     Indication: AGITATION
     Dosage: 2 MG AT BEDTIME ORAL PILL
     Route: 048
     Dates: start: 20111130, end: 20111209

REACTIONS (15)
  - UNRESPONSIVE TO STIMULI [None]
  - HYPOGLYCAEMIA [None]
  - HEART RATE DECREASED [None]
  - CONFUSIONAL STATE [None]
  - PNEUMONIA ASPIRATION [None]
  - SWOLLEN TONGUE [None]
  - SWELLING FACE [None]
  - MENTAL STATUS CHANGES [None]
  - FEAR [None]
  - TRANSIENT ISCHAEMIC ATTACK [None]
  - BODY TEMPERATURE FLUCTUATION [None]
  - HYPERTHERMIA [None]
  - EYE DISCHARGE [None]
  - DYSPHAGIA [None]
  - MENTAL DISORDER [None]
